FAERS Safety Report 26183471 (Version 1)
Quarter: 2025Q4

REPORT INFORMATION
  Report Type: Spontaneous
  Country: US (occurrence: US)
  Receive Date: 20251221
  Receipt Date: 20251221
  Transmission Date: 20260117
  Serious: No
  Sender: TEVA
  Company Number: US-TEVA-VS-3400177

PATIENT
  Sex: Female

DRUGS (2)
  1. QNASL [Suspect]
     Active Substance: BECLOMETHASONE DIPROPIONATE
     Indication: Sinusitis
     Dosage: NASAL AEROSOL,2 INHALATION IN EACH NOSTRIL
     Route: 065
  2. QNASL [Suspect]
     Active Substance: BECLOMETHASONE DIPROPIONATE
     Dosage: NASAL AEROSOL, 40MCG/DOSE, 1 INHALATION IN EACH NOSTRIL
     Route: 065

REACTIONS (6)
  - Burning sensation [Unknown]
  - Incorrect dose administered [Unknown]
  - Wrong technique in product usage process [Unknown]
  - Product use in unapproved indication [Unknown]
  - Drug effect less than expected [Unknown]
  - Device issue [Unknown]
